FAERS Safety Report 8985006 (Version 2)
Quarter: 2013Q1

REPORT INFORMATION
  Report Type: Spontaneous
  Country: US (occurrence: US)
  Receive Date: 20121226
  Receipt Date: 20130115
  Transmission Date: 20140127
  Serious: No
  Sender: FDA-Public Use
  Company Number: US-PFIZER INC-2012325143

PATIENT
  Sex: Female

DRUGS (2)
  1. PRISTIQ [Suspect]
     Indication: DEPRESSION
     Dosage: UNK
  2. CITALOPRAM [Suspect]
     Indication: DEPRESSION
     Dosage: UNK

REACTIONS (2)
  - Medication residue present [Unknown]
  - Drug ineffective [Unknown]
